FAERS Safety Report 6593328-0 (Version None)
Quarter: 2010Q1

REPORT INFORMATION
  Report Type: 
  Country: None (occurrence: None)
  Receive Date: 20100222
  Receipt Date: 20090202
  Transmission Date: 20100710
  Serious: No
  Sender: FDA-Public Use
  Company Number: US-BRISTOL-MYERS SQUIBB COMPANY-14491336

PATIENT
  Age: 15 Year
  Sex: Male

DRUGS (1)
  1. ORENCIA [Suspect]
     Indication: JUVENILE ARTHRITIS
     Dosage: NO OF INFUSIONS: 2

REACTIONS (3)
  - CROHN'S DISEASE [None]
  - MYOCLONUS [None]
  - SPONDYLOARTHROPATHY [None]
